FAERS Safety Report 6725885-5 (Version None)
Quarter: 2010Q2

REPORT INFORMATION
  Report Type: 
  Country: None (occurrence: None)
  Receive Date: 20100514
  Receipt Date: 20100503
  Transmission Date: 20101027
  Serious: Yes (Other)
  Sender: FDA-Public Use
  Company Number: US-PFIZER INC-2009271957

PATIENT
  Sex: Female
  Weight: 79 kg

DRUGS (6)
  1. CHANTIX [Suspect]
     Indication: SMOKING CESSATION THERAPY
     Dosage: 0.5 MG, 1X/DAY
     Route: 048
     Dates: start: 20090908
  2. CHANTIX [Suspect]
     Dosage: 1 MG, 2X/DAY
     Route: 048
  3. LASIX [Concomitant]
     Dosage: 80 MG
     Route: 048
  4. DILTIAZEM [Concomitant]
     Dosage: 300 MG
     Route: 048
  5. BISOPROLOL [Concomitant]
     Dosage: 5 MG
     Route: 048
  6. COUMADIN [Concomitant]
     Dosage: 10 MG
     Route: 048

REACTIONS (1)
  - BLOOD GLUCOSE INCREASED [None]
